FAERS Safety Report 8077995-0 (Version None)
Quarter: 2012Q1

REPORT INFORMATION
  Report Type: 
  Country: None (occurrence: None)
  Receive Date: 20120127
  Receipt Date: 20110106
  Transmission Date: 20120608
  Serious: No
  Sender: FDA-Public Use
  Company Number: US-ABBOTT-11P-163-0695666-00

PATIENT
  Age: 29 Year
  Sex: Female

DRUGS (4)
  1. MULTI-VITAMIN [Concomitant]
     Indication: PRODUCT USED FOR UNKNOWN INDICATION
  2. HUMIRA [Suspect]
     Indication: PSORIASIS
     Dates: start: 20090101
  3. ALPHADOPHILUS [Concomitant]
     Indication: DYSPEPSIA
  4. FLONASE [Concomitant]
     Indication: SINUSITIS

REACTIONS (4)
  - SINUS CONGESTION [None]
  - RHINORRHOEA [None]
  - NASOPHARYNGITIS [None]
  - PARANASAL SINUS HYPERSECRETION [None]
